FAERS Safety Report 6828965-9 (Version None)
Quarter: 2010Q3

REPORT INFORMATION
  Report Type: 
  Country: None (occurrence: None)
  Receive Date: 20100709
  Receipt Date: 20070328
  Transmission Date: 20110219
  Serious: Yes (Other)
  Sender: FDA-Public Use
  Company Number: US-PFIZER INC-2007015016

PATIENT

DRUGS (2)
  1. CHANTIX [Suspect]
     Dates: start: 20070101
  2. CHANTIX [Suspect]

REACTIONS (2)
  - ANAPHYLACTIC REACTION [None]
  - THROAT TIGHTNESS [None]
